FAERS Safety Report 15699963 (Version 2)
Quarter: 2019Q1

REPORT INFORMATION
  Report Type: Report from Study
  Country: GB (occurrence: GB)
  Receive Date: 20181207
  Receipt Date: 20190121
  Transmission Date: 20190417
  Serious: Yes (Hospitalization, Other)
  Sender: FDA-Public Use
  Company Number: GB-BRISTOL-MYERS SQUIBB COMPANY-BMS-2018-089814

PATIENT
  Sex: Female

DRUGS (1)
  1. ABATACEPT [Suspect]
     Active Substance: ABATACEPT
     Indication: RHEUMATOID ARTHRITIS
     Dosage: 125 MG, QWK
     Route: 058
     Dates: start: 20180223

REACTIONS (6)
  - Condition aggravated [Unknown]
  - Cerebrovascular accident [Unknown]
  - Anaemia [Unknown]
  - Pneumonia [Unknown]
  - Liver disorder [Unknown]
  - Blood pressure increased [Unknown]
